FAERS Safety Report 14996252 (Version 1)
Quarter: 2018Q2

REPORT INFORMATION
  Report Type: Spontaneous
  Country: US (occurrence: US)
  Receive Date: 20180611
  Receipt Date: 20180611
  Transmission Date: 20180711
  Serious: No
  Sender: FDA-Public Use
  Company Number: US-IPSEN BIOPHARMACEUTICALS, INC.-2018-05635

PATIENT
  Sex: Female

DRUGS (9)
  1. DYSPORT [Suspect]
     Active Substance: ABOBOTULINUMTOXINA
     Dosage: 12 UNITS
     Route: 065
     Dates: start: 201610, end: 201610
  2. DYSPORT [Suspect]
     Active Substance: ABOBOTULINUMTOXINA
     Indication: SKIN WRINKLING
     Dosage: 12 UNITS
     Route: 065
     Dates: start: 201602, end: 201602
  3. DYSPORT [Suspect]
     Active Substance: ABOBOTULINUMTOXINA
     Indication: OFF LABEL USE
     Dosage: 12 UNITS
     Route: 065
     Dates: start: 201606, end: 201606
  4. DYSPORT [Suspect]
     Active Substance: ABOBOTULINUMTOXINA
     Dosage: 19 UNITS
     Route: 065
     Dates: start: 201712, end: 201712
  5. DYSPORT [Suspect]
     Active Substance: ABOBOTULINUMTOXINA
     Dosage: 12 UNITS
     Route: 065
     Dates: start: 201702, end: 201702
  6. DYSPORT [Suspect]
     Active Substance: ABOBOTULINUMTOXINA
     Dosage: 2 UNITS
     Route: 065
     Dates: start: 201703, end: 201703
  7. DYSPORT [Suspect]
     Active Substance: ABOBOTULINUMTOXINA
     Dosage: 19 UNITS
     Route: 065
     Dates: start: 201708, end: 201708
  8. DYSPORT [Suspect]
     Active Substance: ABOBOTULINUMTOXINA
     Indication: SKIN WRINKLING
     Dosage: 12 UNITS
     Route: 065
     Dates: start: 201507, end: 201507
  9. DYSPORT [Suspect]
     Active Substance: ABOBOTULINUMTOXINA
     Indication: SKIN WRINKLING
     Dosage: 12 UNITS
     Route: 065
     Dates: start: 201511, end: 201511

REACTIONS (5)
  - Inappropriate schedule of drug administration [Unknown]
  - Off label use [Unknown]
  - Drug ineffective [Unknown]
  - Injection site bruising [Not Recovered/Not Resolved]
  - Eczema [Not Recovered/Not Resolved]

NARRATIVE: CASE EVENT DATE: 2017
